FAERS Safety Report 6542296-6 (Version None)
Quarter: 2010Q1

REPORT INFORMATION
  Report Type: 
  Country: None (occurrence: None)
  Receive Date: 20100119
  Receipt Date: 20100114
  Transmission Date: 20100710
  Serious: Yes (Other)
  Sender: FDA-Public Use
  Company Number: FR-MERCK-1001FRA00027

PATIENT
  Age: 24 Year
  Sex: Male

DRUGS (3)
  1. EMEND [Suspect]
     Indication: NAUSEA
     Route: 048
     Dates: start: 20090915, end: 20090916
  2. ETOPOSIDE [Concomitant]
     Route: 065
  3. CISPLATIN [Concomitant]
     Route: 065

REACTIONS (3)
  - COUGH [None]
  - OESOPHAGITIS [None]
  - OROPHARYNGEAL PAIN [None]
